FAERS Safety Report 9374813 (Version 1)
Quarter: 2013Q2

REPORT INFORMATION
  Report Type: Spontaneous
  Country: US (occurrence: US)
  Receive Date: 20130628
  Receipt Date: 20130628
  Transmission Date: 20140414
  Serious: Yes (Other)
  Sender: FDA-Public Use
  Company Number: US-PAR PHARMACEUTICAL, INC-2013SCPR006001

PATIENT
  Sex: 0

DRUGS (4)
  1. METOCLOPRAMIDE [Suspect]
     Indication: GASTROOESOPHAGEAL REFLUX DISEASE
     Dosage: 5 MG, QID
     Route: 048
     Dates: start: 2006
  2. METOCLOPRAMIDE [Suspect]
     Indication: DYSPEPSIA
     Dosage: 10 MG, OD
     Route: 048
     Dates: start: 2006
  3. METOCLOPRAMIDE [Suspect]
     Dosage: 5 MG, TID
     Route: 048
     Dates: start: 2006
  4. METOCLOPRAMIDE [Suspect]
     Dosage: 5 MG, BID
     Route: 048
     Dates: start: 2006

REACTIONS (2)
  - Hypokalaemia [Unknown]
  - Parkinsonism [Recovering/Resolving]
